FAERS Safety Report 17682283 (Version 2)
Quarter: 2020Q2

REPORT INFORMATION
  Report Type: Spontaneous
  Country: US (occurrence: US)
  Receive Date: 20200418
  Receipt Date: 20200525
  Transmission Date: 20200714
  Serious: No
  Sender: FDA-Public Use
  Company Number: US-ASTRAZENECA-2020SE41724

PATIENT
  Sex: Male

DRUGS (2)
  1. PULMICORT FLEXHALER [Suspect]
     Active Substance: BUDESONIDE
     Route: 055
  2. VENTOLIN HFA [Concomitant]
     Active Substance: ALBUTEROL SULFATE

REACTIONS (11)
  - Intentional product misuse [Unknown]
  - Product packaging quantity issue [Unknown]
  - Blood pressure abnormal [Unknown]
  - Product taste abnormal [Unknown]
  - Drug ineffective [Unknown]
  - Glaucoma [Unknown]
  - Cell death [Unknown]
  - Dyspnoea [Unknown]
  - Product dose omission [Unknown]
  - Wrong technique in product usage process [Unknown]
  - Device delivery system issue [Unknown]
